FAERS Safety Report 4492222-9 (Version None)
Quarter: 2004Q4

REPORT INFORMATION
  Report Type: 
  Country: None (occurrence: None)
  Receive Date: 20041103
  Receipt Date: 20041025
  Transmission Date: 20050328
  Serious: Yes (Hospitalization, Other)
  Sender: FDA-Public Use
  Company Number: IL-MERCK-0410ISR00052

PATIENT
  Sex: Female

DRUGS (1)
  1. VIOXX [Suspect]
     Indication: INTERVERTEBRAL DISC DISPLACEMENT
     Route: 048
     Dates: start: 20000101, end: 20040901

REACTIONS (7)
  - CHEST DISCOMFORT [None]
  - CORONARY ARTERY OCCLUSION [None]
  - DRY MOUTH [None]
  - HEART RATE INCREASED [None]
  - MYOCARDIAL INFARCTION [None]
  - NAUSEA [None]
  - THYROID GLAND CANCER [None]
